FAERS Safety Report 9665552 (Version 1)
Quarter: 2013Q4

REPORT INFORMATION
  Report Type: Spontaneous
  Country: US (occurrence: US)
  Receive Date: 20131104
  Receipt Date: 20131104
  Transmission Date: 20140711
  Serious: Yes (Hospitalization, Other)
  Sender: FDA-Public Use
  Company Number: US-BAYER-2013-128889

PATIENT
  Sex: Male

DRUGS (6)
  1. CIPROFLOXACIN BETAIN [Suspect]
     Route: 064
  2. AMPICILLIN [Suspect]
     Route: 064
  3. GENTAMICIN [Suspect]
     Route: 064
  4. SULBACTAM [Suspect]
     Route: 064
  5. VANCOMYCIN [Suspect]
     Route: 064
  6. BETAMETHASONE [Suspect]
     Route: 064

REACTIONS (5)
  - Foetal exposure during pregnancy [None]
  - Premature baby [Recovered/Resolved]
  - Apgar score low [Recovered/Resolved]
  - Low birth weight baby [Recovered/Resolved]
  - Noonan syndrome [None]
